FAERS Safety Report 11212859 (Version 1)
Quarter: 2015Q2

REPORT INFORMATION
  Report Type: Spontaneous
  Country: US (occurrence: None)
  Receive Date: 20150622
  Receipt Date: 20150622
  Transmission Date: 20150821
  Serious: Yes (Hospitalization)
  Sender: FDA-Public Use
  Company Number: None

PATIENT
  Age: 78 Year
  Sex: Female

DRUGS (3)
  1. PREMARIN [Suspect]
     Active Substance: ESTROGENS, CONJUGATED
     Indication: VULVOVAGINAL DRYNESS
     Dosage: 2 GRAMS A DAY FOR 4 DAYS
     Route: 067
     Dates: start: 20141211, end: 20141215
  2. GABAPENTIN. [Concomitant]
     Active Substance: GABAPENTIN
  3. ATIVAN [Concomitant]
     Active Substance: LORAZEPAM

REACTIONS (11)
  - Vulvovaginal mycotic infection [None]
  - Nasopharyngitis [None]
  - Feeling abnormal [None]
  - Product odour abnormal [None]
  - Product quality issue [None]
  - Vaginitis gardnerella [None]
  - Vulvovaginal burning sensation [None]
  - Hyperhidrosis [None]
  - Citrobacter infection [None]
  - Chills [None]
  - Product lot number issue [None]

NARRATIVE: CASE EVENT DATE: 20141211
